FAERS Safety Report 17444727 (Version 2)
Quarter: 2021Q3

REPORT INFORMATION
  Report Type: Spontaneous
  Country: US (occurrence: US)
  Receive Date: 20200221
  Receipt Date: 20210806
  Transmission Date: 20211014
  Serious: Yes (Other)
  Sender: FDA-Public Use
  Company Number: US-TEVA-2020-US-1188303

PATIENT
  Sex: Female

DRUGS (4)
  1. VALSARTAN AND HYDROCHLOROTHIAZIDE MACLEODS [Suspect]
     Active Substance: HYDROCHLOROTHIAZIDE\VALSARTAN
     Indication: HYPERTENSION
     Dosage: DOSE: 25/160 MG
     Route: 048
     Dates: start: 20150515, end: 20160221
  2. VALSARTAN AND HYDROCHLOROTHIAZIDE AUROBINDO [Suspect]
     Active Substance: HYDROCHLOROTHIAZIDE\VALSARTAN
     Indication: HYPERTENSION
     Dosage: DOSE: 25/160 MG
     Route: 048
     Dates: start: 20150312, end: 20190407
  3. VALSARTAN AND HYDROCHLOROTHIAZIDE MYLAN [Suspect]
     Active Substance: HYDROCHLOROTHIAZIDE\VALSARTAN
     Indication: HYPERTENSION
     Dosage: DOSE: 25/160 MG
     Route: 048
     Dates: start: 20160718, end: 20161128
  4. VALSARTAN AND HYDROCHLOROTHIAZIDE ALEMBIC [Suspect]
     Active Substance: HYDROCHLOROTHIAZIDE\VALSARTAN
     Indication: HYPERTENSION
     Dosage: DOSE: 25/160 MG
     Route: 048
     Dates: start: 20170519, end: 20181008

REACTIONS (1)
  - Colorectal cancer [Unknown]
